FAERS Safety Report 17726256 (Version 1)
Quarter: 2020Q2

REPORT INFORMATION
  Report Type: Report from Study
  Country: None (occurrence: ES)
  Receive Date: 20200429
  Receipt Date: 20200429
  Transmission Date: 20200714
  Serious: Yes (Death, Hospitalization)
  Sender: FDA-Public Use
  Company Number: ES-ABBVIE-20K-144-3383533-00

PATIENT
  Age: 79 Year
  Sex: Female

DRUGS (1)
  1. DUODOPA [Suspect]
     Active Substance: CARBIDOPA\LEVODOPA
     Indication: PARKINSON^S DISEASE
     Route: 050
     Dates: start: 20150325, end: 20200427

REACTIONS (6)
  - Fall [Fatal]
  - Cerebral haemorrhage [Fatal]
  - Craniocerebral injury [Fatal]
  - Traumatic haematoma [Fatal]
  - Coma [Fatal]
  - Head injury [Fatal]

NARRATIVE: CASE EVENT DATE: 20200424
